FAERS Safety Report 16613652 (Version 1)
Quarter: 2019Q3

REPORT INFORMATION
  Report Type: Spontaneous
  Country: FR (occurrence: FR)
  Receive Date: 20190723
  Receipt Date: 20190723
  Transmission Date: 20191004
  Serious: Yes (Life-Threatening, Hospitalization)
  Sender: FDA-Public Use
  Company Number: FR-TEVA-2019-FR-1082370

PATIENT
  Age: 78 Year
  Sex: Female
  Weight: 54.2 kg

DRUGS (13)
  1. MIANSERINE (CHLORHYDRATE DE) [Concomitant]
     Active Substance: MIANSERIN HYDROCHLORIDE
  2. SERESTA 10 MG, COMPRIM? [Concomitant]
     Active Substance: OXAZEPAM
  3. LOPRAZOLAM [Concomitant]
     Active Substance: LOPRAZOLAM
  4. CALCIDOSE VITAMINE D, POUDRE ORALE EN SACHET-DOSE [Concomitant]
     Active Substance: CALCIUM\CHOLECALCIFEROL
  5. PROLIA [Concomitant]
     Active Substance: DENOSUMAB
  6. MACROGOL 4000 [Concomitant]
     Active Substance: POLYETHYLENE GLYCOL 4000
  7. PARACETAMOL [Concomitant]
     Active Substance: ACETAMINOPHEN
  8. TRAMADOL (CHLORHYDRATE DE) [Concomitant]
     Active Substance: TRAMADOL HYDROCHLORIDE
  9. PRIMALAN 5 MG, COMPRIM? S?CABLE [Concomitant]
  10. ATROVENT [Concomitant]
     Active Substance: IPRATROPIUM BROMIDE
  11. COPAXONE [Suspect]
     Active Substance: GLATIRAMER ACETATE
     Indication: MULTIPLE SCLEROSIS
     Dosage: 3 DF EVERY 1 WEEKS
     Route: 058
     Dates: start: 2006, end: 20171127
  12. VOLTARENE [Concomitant]
  13. LYRICA [Concomitant]
     Active Substance: PREGABALIN

REACTIONS (1)
  - B-cell type acute leukaemia [Recovering/Resolving]

NARRATIVE: CASE EVENT DATE: 20190322
